FAERS Safety Report 21393225 (Version 1)
Quarter: 2022Q3

REPORT INFORMATION
  Report Type: Other
  Country: None (occurrence: US)
  Receive Date: 20220929
  Receipt Date: 20220929
  Transmission Date: 20221027
  Serious: Yes (Hospitalization)
  Sender: FDA-Public Use
  Company Number: US-B.Braun Medical Inc.-2133322

PATIENT
  Age: 33 Year
  Sex: Male

DRUGS (1)
  1. ACETAMINOPHEN [Suspect]
     Active Substance: ACETAMINOPHEN

REACTIONS (4)
  - Accidental overdose [Recovered/Resolved]
  - Mental disorder [Recovered/Resolved]
  - Vital functions abnormal [Recovered/Resolved]
  - Toxicity to various agents [Recovered/Resolved]
